FAERS Safety Report 4657457-0 (Version None)
Quarter: 2005Q2

REPORT INFORMATION
  Report Type: 
  Country: None (occurrence: None)
  Receive Date: 20050509
  Receipt Date: 20050509
  Transmission Date: 20051028
  Serious: Yes (Other)
  Sender: FDA-Public Use
  Company Number: None

PATIENT
  Age: 40 Year
  Sex: Female
  Weight: 81.6475 kg

DRUGS (2)
  1. CORRECTOL [Suspect]
     Indication: ABNORMAL FAECES
     Dosage: 2 TABS ORAL
     Route: 048
     Dates: start: 20041119, end: 20041119
  2. ALESSE [Suspect]
     Indication: CONTRACEPTION
     Dosage: ORAL
     Route: 048
     Dates: start: 20041119

REACTIONS (6)
  - ABDOMINAL PAIN UPPER [None]
  - HYPERHIDROSIS [None]
  - LOSS OF CONSCIOUSNESS [None]
  - NAUSEA [None]
  - NO REACTION ON PREVIOUS EXPOSURE TO DRUG [None]
  - VERTIGO [None]
